FAERS Safety Report 18325311 (Version 1)
Quarter: 2020Q3

REPORT INFORMATION
  Report Type: Spontaneous
  Country: ES (occurrence: ES)
  Receive Date: 20200929
  Receipt Date: 20200929
  Transmission Date: 20201103
  Serious: Yes (Death, Other)
  Sender: FDA-Public Use
  Company Number: ES-FRESENIUS KABI-FK202009907

PATIENT
  Age: 46 Year
  Sex: Female

DRUGS (4)
  1. RUXOLITINIB [Suspect]
     Active Substance: RUXOLITINIB
     Indication: GRAFT VERSUS HOST DISEASE
     Dosage: UNKNOWN
     Route: 065
  2. PREDNISONE. [Suspect]
     Active Substance: PREDNISONE
     Indication: GRAFT VERSUS HOST DISEASE
     Dosage: UNKNOWN
     Route: 065
  3. ACYCLOVIR SODIUM (MANUFACTURER UNKNOWN) [Suspect]
     Active Substance: ACYCLOVIR SODIUM
     Indication: ANTIVIRAL TREATMENT
     Dosage: UNKNOWN
     Route: 042
  4. MYCOPHENOLATE MOFETIL. [Suspect]
     Active Substance: MYCOPHENOLATE MOFETIL
     Indication: GRAFT VERSUS HOST DISEASE
     Dosage: UNKNOWN
     Route: 065

REACTIONS (2)
  - Septic shock [Fatal]
  - Cytomegalovirus infection [Unknown]
